FAERS Safety Report 24690917 (Version 1)
Quarter: 2024Q4

REPORT INFORMATION
  Report Type: Report from Study
  Country: CN (occurrence: CN)
  Receive Date: 20241203
  Receipt Date: 20241203
  Transmission Date: 20250114
  Serious: Yes (Other)
  Sender: GILEAD
  Company Number: CN-GILEAD-2024-0695688

PATIENT
  Age: 47 Year
  Sex: Female

DRUGS (2)
  1. SACITUZUMAB GOVITECAN-HZIY [Suspect]
     Active Substance: SACITUZUMAB GOVITECAN-HZIY
     Indication: Breast cancer
     Dosage: 180 MG/KG  D1, 180MG
     Route: 041
     Dates: start: 20241024
  2. SACITUZUMAB GOVITECAN-HZIY [Suspect]
     Active Substance: SACITUZUMAB GOVITECAN-HZIY
     Dosage: 180 MG/180MG D8 TREATMENT.
     Route: 042

REACTIONS (1)
  - Drug-induced liver injury [Unknown]
